FAERS Safety Report 9649248 (Version 1)
Quarter: 2013Q4

REPORT INFORMATION
  Report Type: Spontaneous
  Country: US (occurrence: US)
  Receive Date: 20131028
  Receipt Date: 20131028
  Transmission Date: 20140711
  Serious: Yes (Death)
  Sender: FDA-Public Use
  Company Number: US-GLAXOSMITHKLINE-A1046723A

PATIENT
  Age: 50 Year
  Sex: Female

DRUGS (5)
  1. LAMICTAL [Suspect]
     Indication: AFFECTIVE DISORDER
     Dosage: 50MG PER DAY
     Route: 048
  2. GEODON [Concomitant]
  3. LITHIUM [Concomitant]
  4. CLONAZEPAM [Concomitant]
  5. ZOLPIDEM [Concomitant]

REACTIONS (2)
  - Death [Fatal]
  - Wrong technique in drug usage process [Unknown]
